FAERS Safety Report 23301306 (Version 2)
Quarter: 2023Q4

REPORT INFORMATION
  Report Type: Report from Study
  Country: US (occurrence: US)
  Receive Date: 20231215
  Receipt Date: 20231222
  Transmission Date: 20240109
  Serious: Yes (Other)
  Sender: FDA-Public Use
  Company Number: US-TAKEDA-2023TUS116667

PATIENT
  Age: 62 Year
  Sex: Male

DRUGS (2)
  1. FRUQUINTINIB [Suspect]
     Active Substance: FRUQUINTINIB
     Indication: Rectal cancer
     Dosage: 5 MILLIGRAM
     Route: 048
     Dates: start: 20231128, end: 20231206
  2. FRUQUINTINIB [Suspect]
     Active Substance: FRUQUINTINIB
     Dosage: 5 MILLIGRAM
     Route: 048
     Dates: start: 202311, end: 202312

REACTIONS (9)
  - Rectal cancer [Unknown]
  - Thrombosis [Recovering/Resolving]
  - Peripheral swelling [Recovering/Resolving]
  - Gastric dilatation [Unknown]
  - Gastrointestinal disorder [Unknown]
  - Abdominal discomfort [Unknown]
  - Abdominal rigidity [Unknown]
  - Abdominal distension [Unknown]
  - Fatigue [Unknown]

NARRATIVE: CASE EVENT DATE: 20231128
